FAERS Safety Report 21582932 (Version 5)
Quarter: 2024Q3

REPORT INFORMATION
  Report Type: Spontaneous
  Country: AU (occurrence: AU)
  Receive Date: 20221111
  Receipt Date: 20240701
  Transmission Date: 20241016
  Serious: Yes (Death, Life-Threatening, Hospitalization, Other)
  Sender: STRIDES
  Company Number: None

PATIENT
  Age: 2 Year
  Sex: Female
  Weight: 5 kg

DRUGS (14)
  1. PHENOBARBITAL [Suspect]
     Active Substance: PHENOBARBITAL
     Indication: Seizure
     Dosage: UNK, ON DAY 3
     Route: 065
     Dates: start: 202109, end: 202109
  2. AMOXICILLIN [Suspect]
     Active Substance: AMOXICILLIN
     Indication: Antibiotic therapy
     Dosage: UNK
     Route: 065
     Dates: start: 202109
  3. VANCOMYCIN [Suspect]
     Active Substance: VANCOMYCIN
     Indication: Antibiotic therapy
     Dosage: UNK, DAYS 13 AND 14 OF HER ADMISSION
     Route: 042
     Dates: start: 20210912
  4. VANCOMYCIN [Suspect]
     Active Substance: VANCOMYCIN
     Indication: Sepsis
  5. LEVETIRACETAM [Suspect]
     Active Substance: LEVETIRACETAM
     Indication: Seizure
     Dosage: UNK, ON ADMISSION
     Route: 065
     Dates: start: 2021
  6. VALPROATE SODIUM [Suspect]
     Active Substance: VALPROATE SODIUM
     Indication: Seizure
     Dosage: UNK, ON DAY 9
     Route: 065
     Dates: start: 202109
  7. AMOXICILLIN\CLAVULANIC ACID [Suspect]
     Active Substance: AMOXICILLIN\CLAVULANIC ACID
     Indication: Antibiotic therapy
     Dosage: UNK
     Route: 065
     Dates: start: 202109
  8. COTRIMOXAZOLE [Suspect]
     Active Substance: SULFAMETHOXAZOLE\TRIMETHOPRIM
     Indication: Antibiotic therapy
     Dosage: UNK, DAYS 9-11 OF HER ADMISSION
     Route: 065
     Dates: start: 202109
  9. MEROPENEM [Suspect]
     Active Substance: MEROPENEM
     Indication: Antibiotic therapy
     Dosage: UNK, DAYS 13 AND 14 OF HER ADMISSION
     Route: 042
     Dates: start: 202109
  10. MEROPENEM [Suspect]
     Active Substance: MEROPENEM
     Indication: Sepsis
  11. MEROPENEM [Concomitant]
     Active Substance: MEROPENEM
     Indication: Sepsis
     Dosage: UNK (DAYS 13 AND 14 OF HER ADMISSION)
     Route: 042
  12. LEVETIRACETAM [Concomitant]
     Active Substance: LEVETIRACETAM
     Indication: Seizure
     Dosage: UNK (ON ADMISSION)
     Route: 065
  13. VALPROATE SODIUM [Concomitant]
     Active Substance: VALPROATE SODIUM
     Indication: Seizure
     Dosage: UNK ON DAY 9
     Route: 065
  14. COTRIMOXAZOLE [Concomitant]
     Active Substance: SULFAMETHOXAZOLE\TRIMETHOPRIM
     Indication: Antibiotic therapy
     Dosage: UNK DAYS 9-11 OF HER ADMISSION
     Route: 065

REACTIONS (6)
  - Death [Fatal]
  - Liver disorder [Unknown]
  - Drug reaction with eosinophilia and systemic symptoms [Recovered/Resolved]
  - Condition aggravated [Recovered/Resolved]
  - Condition aggravated [Recovered/Resolved]
  - Liver function test abnormal [Recovered/Resolved]

NARRATIVE: CASE EVENT DATE: 20210910
